FAERS Safety Report 7657151-8 (Version None)
Quarter: 2011Q3

REPORT INFORMATION
  Report Type: 
  Country: None (occurrence: None)
  Receive Date: 20110804
  Receipt Date: 20110606
  Transmission Date: 20111222
  Serious: No
  Sender: FDA-Public Use
  Company Number: US-GLAXOSMITHKLINE-A0930377A

PATIENT
  Age: 80 Year
  Sex: Female

DRUGS (9)
  1. ADVAIR DISKUS 100/50 [Suspect]
     Indication: ASTHMA
     Dosage: 2PUFF TWICE PER DAY
     Route: 055
     Dates: start: 20110524, end: 20110603
  2. KLONOPIN [Concomitant]
  3. TOPROL-XL [Concomitant]
  4. NEBULIZER [Concomitant]
  5. COZAAR [Concomitant]
  6. ADVAIR DISKUS 100/50 [Suspect]
  7. PREDNISONE [Concomitant]
     Route: 048
  8. RESCUE REMEDY [Concomitant]
  9. CRESTOR [Concomitant]

REACTIONS (3)
  - DYSPNOEA [None]
  - DYSPHONIA [None]
  - CHEST DISCOMFORT [None]
